FAERS Safety Report 6447602-9 (Version None)
Quarter: 2009Q4

REPORT INFORMATION
  Report Type: 
  Country: None (occurrence: None)
  Receive Date: 20091119
  Receipt Date: 20090728
  Transmission Date: 20100525
  Serious: Yes (Other)
  Sender: FDA-Public Use
  Company Number: US-AMGEN-KDL357666

PATIENT
  Sex: Male
  Weight: 97.6 kg

DRUGS (6)
  1. ENBREL [Suspect]
     Indication: ANKYLOSING SPONDYLITIS
     Route: 058
     Dates: start: 20060307
  2. NORFLEX [Concomitant]
  3. NAPROXEN [Concomitant]
  4. FLOMAX [Concomitant]
  5. KLONOPIN [Concomitant]
  6. CYMBALTA [Concomitant]

REACTIONS (7)
  - ANKYLOSING SPONDYLITIS [None]
  - BLISTER [None]
  - DEPRESSION [None]
  - IMPAIRED HEALING [None]
  - PELVIC PAIN [None]
  - PROSTATITIS [None]
  - SKIN LACERATION [None]
